FAERS Safety Report 23167816 (Version 4)
Quarter: 2024Q1

REPORT INFORMATION
  Report Type: Report from Study
  Country: HK (occurrence: HK)
  Receive Date: 20231109
  Receipt Date: 20240104
  Transmission Date: 20240409
  Serious: Yes (Death, Hospitalization)
  Sender: FDA-Public Use
  Company Number: HK-ANTENGENE-20231102115

PATIENT
  Age: 64 Year
  Sex: Female

DRUGS (10)
  1. SELINEXOR [Suspect]
     Active Substance: SELINEXOR
     Indication: Plasma cell myeloma
     Dosage: 60 MG, QW
     Route: 048
     Dates: start: 20220809, end: 2023
  2. NORVASC [Concomitant]
     Active Substance: AMLODIPINE BESYLATE
  3. ACYCLOVIR [Concomitant]
     Active Substance: ACYCLOVIR
  4. ENTECAVIR [Concomitant]
     Active Substance: ENTECAVIR
  5. SULFAMETHOXAZOLE\TRIMETHOPRIM [Concomitant]
     Active Substance: SULFAMETHOXAZOLE\TRIMETHOPRIM
  6. PANTOPRAZOLE SODIUM [Concomitant]
     Active Substance: PANTOPRAZOLE SODIUM
  7. DIAMICRON [Concomitant]
  8. SODIUM CHLORIDE [Concomitant]
     Active Substance: SODIUM CHLORIDE
  9. SENOKOT [Concomitant]
     Active Substance: SENNOSIDES
  10. LACTULOSE [Concomitant]
     Active Substance: LACTULOSE

REACTIONS (1)
  - Pneumonia influenzal [Fatal]

NARRATIVE: CASE EVENT DATE: 20230926
